FAERS Safety Report 6248986-7 (Version None)
Quarter: 2009Q2

REPORT INFORMATION
  Report Type: 
  Country: None (occurrence: None)
  Receive Date: 20090624
  Receipt Date: 20090624
  Transmission Date: 20091009
  Serious: Yes (Hospitalization)
  Sender: FDA-Public Use
  Company Number: None

PATIENT
  Age: 90 Year
  Sex: Female
  Weight: 59 kg

DRUGS (15)
  1. COUMADIN [Suspect]
     Indication: EMBOLISM VENOUS
     Dosage: 2.5 DAILY PO, CHRONIC
     Route: 048
  2. VICODIN [Concomitant]
  3. ATACANOL [Concomitant]
  4. MEVACOR [Concomitant]
  5. MOM [Concomitant]
  6. M.V.I. [Concomitant]
  7. ZOLOFT [Concomitant]
  8. VIT B12 [Concomitant]
  9. SENOKOT [Concomitant]
  10. RESTORIL [Concomitant]
  11. OSCAL [Concomitant]
  12. PHENERGAN [Concomitant]
  13. POTASSIUM CHLORIDE [Concomitant]
  14. PRILOSEC [Concomitant]
  15. REMERSON [Concomitant]

REACTIONS (5)
  - ABDOMINAL PAIN [None]
  - HAEMATOCRIT DECREASED [None]
  - HAEMOGLOBIN DECREASED [None]
  - INTERNATIONAL NORMALISED RATIO DECREASED [None]
  - RECTAL HAEMORRHAGE [None]
